FAERS Safety Report 6797984-3 (Version None)
Quarter: 2010Q2

REPORT INFORMATION
  Report Type: 
  Country: None (occurrence: None)
  Receive Date: 20100623
  Receipt Date: 20091215
  Transmission Date: 20101027
  Serious: Yes (Disabling)
  Sender: FDA-Public Use
  Company Number: APP200900180

PATIENT
  Age: 25 Year
  Sex: Female

DRUGS (4)
  1. MARCAINE HYDROCHLORIDE W/ EPINEPHRINE [Suspect]
     Indication: MUSCULOSKELETAL PAIN
     Dosage: 300 ML, CONTINUOUS VIA PUMP, INTRA-ARTICULAR
     Route: 014
     Dates: start: 20020408
  2. ZIMMER SORENSON PAIN PUMP [Suspect]
     Indication: MUSCULOSKELETAL PAIN
     Dates: start: 20020408
  3. ANCEF [Concomitant]
  4. MORPHINE SULFATE INJ [Concomitant]

REACTIONS (10)
  - ARTHRITIS [None]
  - CHONDROLYSIS [None]
  - DISCOMFORT [None]
  - EXOSTOSIS [None]
  - JOINT LOCK [None]
  - MUSCULOSKELETAL PAIN [None]
  - MUSCULOSKELETAL STIFFNESS [None]
  - OSTEOARTHRITIS [None]
  - OSTEOSCLEROSIS [None]
  - UNEVALUABLE EVENT [None]
